FAERS Safety Report 25751748 (Version 1)
Quarter: 2025Q3

REPORT INFORMATION
  Report Type: Spontaneous
  Country: JP (occurrence: JP)
  Receive Date: 20250902
  Receipt Date: 20250902
  Transmission Date: 20251020
  Serious: Yes (Hospitalization)
  Sender: MERCK SHARP & DOHME LLC
  Company Number: JP-009507513-2323906

PATIENT
  Age: 83 Year
  Sex: Male
  Weight: 55.7 kg

DRUGS (9)
  1. KEYTRUDA [Suspect]
     Active Substance: PEMBROLIZUMAB
     Indication: Bladder cancer
     Route: 041
     Dates: start: 20250528, end: 20250624
  2. Limaprost Alfadex Tablets 5microgram [Concomitant]
     Route: 048
  3. PARMODIA XR TABLETS 0.4mg [Concomitant]
     Route: 048
  4. AMLODIPINE [Concomitant]
     Active Substance: AMLODIPINE BESYLATE
     Route: 048
  5. OLMESARTAN OD Tablets 20mg [Concomitant]
     Route: 048
  6. BIO-THREE OD Tablets [Concomitant]
     Route: 048
  7. Amitiza Capsules 24microgram [Concomitant]
     Route: 048
  8. PADCEV [Concomitant]
     Active Substance: ENFORTUMAB VEDOTIN-EJFV
     Indication: Bladder cancer
     Route: 041
     Dates: start: 20250528, end: 20250624
  9. Ezetimibe Tablets 10mg [Concomitant]
     Route: 048

REACTIONS (1)
  - Pulmonary toxicity [Recovering/Resolving]

NARRATIVE: CASE EVENT DATE: 20250707
